FAERS Safety Report 9129651 (Version 2)
Quarter: 2014Q2

REPORT INFORMATION
  Report Type: Spontaneous
  Country: US (occurrence: US)
  Receive Date: 20130125
  Receipt Date: 20140602
  Transmission Date: 20141212
  Serious: Yes (Other)
  Sender: FDA-Public Use
  Company Number: CHPA2013US000465

PATIENT
  Age: 82 Year
  Sex: Female

DRUGS (6)
  1. VOLTAREN GEL [Suspect]
     Indication: INFECTIVE TENOSYNOVITIS
     Dosage: UNK, UNK
     Route: 061
  2. VOLTAREN GEL [Suspect]
     Indication: OFF LABEL USE
  3. VOLTAREN GEL [Suspect]
     Indication: INFECTION
  4. VOLTAREN GEL [Suspect]
     Indication: OFF LABEL USE
  5. VOLTAREN GEL [Suspect]
     Indication: BURSITIS
  6. VOLTAREN GEL [Suspect]
     Indication: OFF LABEL USE

REACTIONS (7)
  - Atrial fibrillation [Unknown]
  - Palpitations [Not Recovered/Not Resolved]
  - Back pain [Unknown]
  - Pain [Unknown]
  - Therapeutic response changed [Unknown]
  - Wrong technique in drug usage process [Unknown]
  - Drug administered at inappropriate site [Unknown]
